FAERS Safety Report 14692328 (Version 1)
Quarter: 2018Q1

REPORT INFORMATION
  Report Type: Spontaneous
  Country: DK (occurrence: DK)
  Receive Date: 20180329
  Receipt Date: 20180329
  Transmission Date: 20180509
  Serious: Yes (Life-Threatening, Hospitalization, Disabling, Other)
  Sender: FDA-Public Use
  Company Number: DK-BRISTOL-MYERS SQUIBB COMPANY-BMS-2018-026957

PATIENT
  Age: 79 Year
  Sex: Female

DRUGS (8)
  1. PAMOL [Concomitant]
     Active Substance: ACETAMINOPHEN
     Indication: PAIN
     Dosage: 1000 MG, UNK
     Route: 048
     Dates: start: 20131230
  2. ELIQUIS [Suspect]
     Active Substance: APIXABAN
     Indication: THROMBOSIS PROPHYLAXIS
     Dosage: 5 MG/DAY, UNK
     Route: 048
     Dates: start: 20170404, end: 20180226
  3. ATORVASTATIN ACTAVIS               /01326102/ [Concomitant]
     Indication: CARDIOVASCULAR EVENT PROPHYLAXIS
     Dosage: 20 MG/DAY, UNK
     Route: 048
     Dates: start: 20180117
  4. BRICANYL [Concomitant]
     Active Substance: TERBUTALINE SULFATE
     Indication: ASTHMA
     Dosage: 1 DF, UNK
     Route: 055
     Dates: start: 20131007
  5. METOPROLOLSUCCINAT HEXAL [Concomitant]
     Active Substance: METOPROLOL SUCCINATE
     Indication: HEART RATE IRREGULAR
     Dosage: 25 MG/DAY, UNK
     Route: 048
     Dates: start: 20171116
  6. SPIRIVA [Concomitant]
     Active Substance: TIOTROPIUM BROMIDE MONOHYDRATE
     Indication: CHRONIC RESPIRATORY DISEASE
     Dosage: 18 MG/DAY
     Route: 055
     Dates: start: 20130517
  7. RELVAR ELLIPTA [Concomitant]
     Active Substance: FLUTICASONE FUROATE\VILANTEROL TRIFENATATE
     Indication: CHRONIC OBSTRUCTIVE PULMONARY DISEASE
     Dosage: 1 DF, UNK
     Route: 055
     Dates: start: 20160105
  8. PANTOPRAZOL ACTAVIS [Concomitant]
     Active Substance: PANTOPRAZOLE SODIUM
     Indication: GASTRIC PH DECREASED
     Dosage: 40 MG/ DAY, UNK
     Route: 048
     Dates: start: 20131230

REACTIONS (4)
  - Monoparesis [Not Recovered/Not Resolved]
  - Back pain [Not Recovered/Not Resolved]
  - Headache [Not Recovered/Not Resolved]
  - Cerebral haemorrhage [Not Recovered/Not Resolved]

NARRATIVE: CASE EVENT DATE: 20180226
